FAERS Safety Report 12987115 (Version 1)
Quarter: 2016Q4

REPORT INFORMATION
  Report Type: Spontaneous
  Country: US (occurrence: US)
  Receive Date: 20161130
  Receipt Date: 20161130
  Transmission Date: 20170207
  Serious: Yes (Other)
  Sender: FDA-Public Use
  Company Number: US-LUNDBECK-DKLU2023105

PATIENT
  Age: 9 Month
  Sex: Male

DRUGS (3)
  1. SABRIL [Suspect]
     Active Substance: VIGABATRIN
     Indication: INFANTILE SPASMS
     Route: 065
     Dates: start: 20161020
  2. SABRIL [Suspect]
     Active Substance: VIGABATRIN
     Route: 065
     Dates: start: 201611
  3. SABRIL [Suspect]
     Active Substance: VIGABATRIN
     Route: 065
     Dates: start: 201611

REACTIONS (2)
  - Wrong technique in product usage process [Unknown]
  - Seizure [Unknown]

NARRATIVE: CASE EVENT DATE: 201611
